FAERS Safety Report 24372666 (Version 1)
Quarter: 2024Q3

REPORT INFORMATION
  Report Type: Report from Study
  Country: US (occurrence: US)
  Receive Date: 20240927
  Receipt Date: 20240927
  Transmission Date: 20241017
  Serious: Yes (Other)
  Sender: ABBVIE
  Company Number: US-ABBVIE-5933732

PATIENT
  Age: 45 Year
  Sex: Female

DRUGS (2)
  1. SKYRIZI [Suspect]
     Active Substance: RISANKIZUMAB-RZAA
     Indication: Psoriatic arthropathy
     Dosage: DOSAGE: 150 MG/ML WEEK 0, FORM STRENGTH- 150MG/ML
     Route: 058
     Dates: start: 20240722, end: 20240722
  2. SKYRIZI [Suspect]
     Active Substance: RISANKIZUMAB-RZAA
     Dosage: DOSAGE: 150 MG/ML WEEK 4, FORM STRENGTH- 150MG/ML, THEN EVERY 12 WEEKS THEREAFTER
     Route: 058
     Dates: start: 20240825

REACTIONS (3)
  - Intervertebral disc operation [Unknown]
  - Procedural nausea [Recovered/Resolved]
  - Post procedural complication [Recovered/Resolved]

NARRATIVE: CASE EVENT DATE: 20240801
